FAERS Safety Report 5079505-9 (Version None)
Quarter: 2006Q3

REPORT INFORMATION
  Report Type: 
  Country: None (occurrence: None)
  Receive Date: 20060814
  Receipt Date: 20050930
  Transmission Date: 20061208
  Serious: No
  Sender: FDA-Public Use
  Company Number: US-BRISTOL-MYERS SQUIBB COMPANY-13128061

PATIENT

DRUGS (1)
  1. GLUCOVANCE [Suspect]

REACTIONS (2)
  - BLOOD GLUCOSE DECREASED [None]
  - HYPERHIDROSIS [None]
